FAERS Safety Report 14950052 (Version 2)
Quarter: 2018Q2

REPORT INFORMATION
  Report Type: Spontaneous
  Country: FR (occurrence: FR)
  Receive Date: 20180530
  Receipt Date: 20180605
  Transmission Date: 20180711
  Serious: Yes (Hospitalization)
  Sender: FDA-Public Use
  Company Number: FR-TEVA-2018-FR-898798

PATIENT
  Age: 85 Year
  Sex: Female
  Weight: 59.9 kg

DRUGS (5)
  1. VANCOMYCINE [Suspect]
     Active Substance: VANCOMYCIN
     Indication: PYREXIA
     Dosage: 2 GRAM DAILY;
     Route: 042
     Dates: start: 20180104, end: 20180122
  2. AMBISOME [Suspect]
     Active Substance: AMPHOTERICIN B
     Indication: PYREXIA
     Dosage: 200 MILLIGRAM DAILY;
     Route: 042
     Dates: start: 20180108, end: 20180115
  3. LASILIX 40 MG, COMPRIM? S?CABLE [Concomitant]
     Active Substance: FUROSEMIDE
     Indication: OEDEMA
     Dosage: 1 DOSAGE FORMS DAILY;
     Route: 048
     Dates: start: 20180109, end: 20180122
  4. FORTUM 2 G, POUDRE POUR SOLUTION INJECTABLE (IV) [Suspect]
     Active Substance: CEFTAZIDIME
     Indication: PYREXIA
     Dosage: 3 DOSAGE FORMS DAILY;
     Route: 042
     Dates: start: 20180104, end: 20180124
  5. ZYLORIC 300 MG, COMPRIM? [Suspect]
     Active Substance: ALLOPURINOL
     Indication: PROPHYLAXIS
     Dosage: 1 DOSAGE FORMS DAILY;
     Route: 048
     Dates: start: 20180102

REACTIONS (1)
  - Acute kidney injury [Recovered/Resolved with Sequelae]

NARRATIVE: CASE EVENT DATE: 20180118
